FAERS Safety Report 6549305-9 (Version None)
Quarter: 2010Q1

REPORT INFORMATION
  Report Type: 
  Country: None (occurrence: None)
  Receive Date: 20100125
  Receipt Date: 20100112
  Transmission Date: 20100710
  Serious: Yes (Hospitalization, Other)
  Sender: FDA-Public Use
  Company Number: US-JNJFOC-20080705328

PATIENT
  Sex: Male
  Weight: 79.5 kg

DRUGS (51)
  1. REMICADE [Suspect]
     Indication: CROHN'S DISEASE
     Route: 042
  2. REMICADE [Suspect]
     Route: 042
  3. REMICADE [Suspect]
     Route: 042
  4. REMICADE [Suspect]
     Route: 042
  5. REMICADE [Suspect]
     Route: 042
  6. REMICADE [Suspect]
     Route: 042
  7. REMICADE [Suspect]
     Route: 042
  8. REMICADE [Suspect]
     Route: 042
  9. REMICADE [Suspect]
     Route: 042
  10. REMICADE [Suspect]
     Route: 042
  11. REMICADE [Suspect]
     Route: 042
  12. REMICADE [Suspect]
     Route: 042
  13. REMICADE [Suspect]
     Route: 042
  14. REMICADE [Suspect]
     Route: 042
  15. REMICADE [Suspect]
     Route: 042
  16. REMICADE [Suspect]
     Route: 042
  17. REMICADE [Suspect]
     Route: 042
  18. REMICADE [Suspect]
     Route: 042
  19. PREDNISONE [Concomitant]
     Indication: DIFFUSE LARGE B-CELL LYMPHOMA
  20. PREDNISONE [Concomitant]
     Dosage: FOR 5 DAYS AFTER CHEMOTHERAPY
  21. PREDNISONE [Concomitant]
     Indication: CROHN'S DISEASE
  22. PREDNISONE [Concomitant]
     Dosage: FOR 5 DAYS AFTER CHEMOTHERAPY
  23. ACETAMINOPHEN [Concomitant]
     Indication: PREMEDICATION
  24. ANTIHISTAMINE [Concomitant]
     Indication: PREMEDICATION
  25. STEROIDS [Concomitant]
     Indication: PREMEDICATION
  26. NARCOTIC ANALGESICS [Concomitant]
     Indication: CROHN'S DISEASE
  27. CYCLOPHOSPHAMIDE [Concomitant]
     Indication: DIFFUSE LARGE B-CELL LYMPHOMA
  28. CYCLOPHOSPHAMIDE [Concomitant]
  29. DOXORUBICIN HCL [Concomitant]
     Indication: DIFFUSE LARGE B-CELL LYMPHOMA
  30. DOXORUBICIN HCL [Concomitant]
  31. VINCRISTINE [Concomitant]
     Indication: DIFFUSE LARGE B-CELL LYMPHOMA
  32. VINCRISTINE [Concomitant]
  33. RITUXAN [Concomitant]
     Indication: DIFFUSE LARGE B-CELL LYMPHOMA
  34. RITUXAN [Concomitant]
  35. BACTRIM DS [Concomitant]
  36. ACYCLOVIR [Concomitant]
  37. COMPAZINE [Concomitant]
     Indication: NAUSEA
  38. ZOFRAN [Concomitant]
  39. ATIVAN [Concomitant]
     Indication: INSOMNIA
  40. DIFLUCAN [Concomitant]
  41. PREVACID [Concomitant]
  42. PRAVASTATIN [Concomitant]
  43. VICODIN [Concomitant]
     Indication: PAIN
  44. OXYCODONE HCL [Concomitant]
  45. LORATADINE [Concomitant]
  46. PERCOCET [Concomitant]
     Indication: PAIN
  47. NEULASTA [Concomitant]
  48. ASPIRIN [Concomitant]
  49. CALCIUM PLUS D [Concomitant]
  50. XALATAN [Concomitant]
  51. ENALAPRIL MALEATE [Concomitant]

REACTIONS (4)
  - DIFFUSE LARGE B-CELL LYMPHOMA [None]
  - FEBRILE NEUTROPENIA [None]
  - PULMONARY EMBOLISM [None]
  - SEPTIC SHOCK [None]
